FAERS Safety Report 12133926 (Version 1)
Quarter: 2016Q1

REPORT INFORMATION
  Report Type: Spontaneous
  Country: US (occurrence: US)
  Receive Date: 20160301
  Receipt Date: 20160301
  Transmission Date: 20160526
  Serious: No
  Sender: FDA-Public Use
  Company Number: US-INSYS THERAPEUTICS, INC-INS201505-000178

PATIENT
  Age: 74 Year
  Sex: Male
  Weight: 94.34 kg

DRUGS (9)
  1. BACLOFEN. [Concomitant]
     Active Substance: BACLOFEN
  2. DILAUDID [Concomitant]
     Active Substance: HYDROMORPHONE HYDROCHLORIDE
     Indication: PAIN
  3. FENTANYL. [Concomitant]
     Active Substance: FENTANYL
  4. SUBSYS [Suspect]
     Active Substance: FENTANYL
     Indication: PAIN
     Dates: start: 20150304
  5. BUPIVACAINE [Concomitant]
     Active Substance: BUPIVACAINE
  6. SUBSYS [Suspect]
     Active Substance: FENTANYL
  7. SUBSYS [Suspect]
     Active Substance: FENTANYL
     Dates: start: 20150326
  8. SUBSYS [Suspect]
     Active Substance: FENTANYL
     Dates: start: 20150415
  9. CLONIDINE. [Concomitant]
     Active Substance: CLONIDINE

REACTIONS (5)
  - Dyspnoea [Recovered/Resolved]
  - Off label use [Unknown]
  - Nausea [Recovered/Resolved]
  - Product quality issue [Unknown]
  - Chest discomfort [Recovered/Resolved]

NARRATIVE: CASE EVENT DATE: 20150304
